FAERS Safety Report 6235747-8 (Version None)
Quarter: 2009Q2

REPORT INFORMATION
  Report Type: 
  Country: None (occurrence: None)
  Receive Date: 20090615
  Receipt Date: 20090609
  Transmission Date: 20091009
  Serious: Yes (Death)
  Sender: FDA-Public Use
  Company Number: EG-WYE-H09699109

PATIENT
  Age: 38 Year
  Sex: Female

DRUGS (1)
  1. TEMSIROLIMUS (TEMSIROLIMUS, CONCENTRATE FOR SOLUTION FOR INFUSION) [Suspect]
     Indication: METASTATIC RENAL CELL CARCINOMA
     Dosage: 25 MG 1X PER 1 WK INTRAVENOUS
     Route: 042
     Dates: start: 20090222, end: 20090511

REACTIONS (3)
  - GENERAL PHYSICAL HEALTH DETERIORATION [None]
  - MALIGNANT NEOPLASM PROGRESSION [None]
  - RENAL CANCER METASTATIC [None]
